FAERS Safety Report 16409757 (Version 3)
Quarter: 2019Q2

REPORT INFORMATION
  Report Type: Spontaneous
  Country: US (occurrence: US)
  Receive Date: 20190610
  Receipt Date: 20190625
  Transmission Date: 20190711
  Serious: Yes (Hospitalization, Other)
  Sender: FDA-Public Use
  Company Number: US-PFIZER INC-2019243657

PATIENT
  Age: 66 Year
  Sex: Female
  Weight: 82.54 kg

DRUGS (5)
  1. LYRICA [Suspect]
     Active Substance: PREGABALIN
     Indication: NEUROPATHY PERIPHERAL
     Dosage: 300 MG, UNK
  2. METHADONE [Concomitant]
     Active Substance: METHADONE HYDROCHLORIDE
     Indication: PAIN
     Dosage: 8 MG, 2X/DAY
  3. CELEBREX [Suspect]
     Active Substance: CELECOXIB
     Indication: BACK DISORDER
  4. CELEBREX [Suspect]
     Active Substance: CELECOXIB
     Indication: ROTATOR CUFF SYNDROME
     Dosage: UNK
  5. METHADONE [Concomitant]
     Active Substance: METHADONE HYDROCHLORIDE
     Dosage: 2 MG, UNK

REACTIONS (13)
  - Tremor [Unknown]
  - Asthenia [Unknown]
  - Lower respiratory tract infection [Recovering/Resolving]
  - Infection [Unknown]
  - Peripheral swelling [Recovering/Resolving]
  - Skin ulcer [Unknown]
  - Disease recurrence [Recovering/Resolving]
  - Lower respiratory tract infection [Recovered/Resolved]
  - Bronchitis [Unknown]
  - Localised infection [Unknown]
  - Pneumonia [Unknown]
  - Memory impairment [Unknown]
  - Feeling abnormal [Unknown]

NARRATIVE: CASE EVENT DATE: 201806
